FAERS Safety Report 12653523 (Version 1)
Quarter: 2016Q3

REPORT INFORMATION
  Report Type: Report from Study
  Country: AU (occurrence: AU)
  Receive Date: 20160815
  Receipt Date: 20160815
  Transmission Date: 20161109
  Serious: Yes (Other)
  Sender: FDA-Public Use
  Company Number: AU-009507513-1608AUS005773

PATIENT
  Age: 67 Year
  Sex: Male

DRUGS (4)
  1. MAGNESIUM (UNSPECIFIED) [Concomitant]
     Active Substance: MAGNESIUM
     Dosage: UNK
  2. VIEKIRA PAK [Suspect]
     Active Substance: DASABUVIR\OMBITASVIR\PARITAPREVIR\RITONAVIR
     Dosage: DOSE UNSPECIFIED
     Dates: start: 20151027
  3. RIBAVIRIN. [Suspect]
     Active Substance: RIBAVIRIN
     Dosage: 1200MG, FREQUENCY: UNKNOWN
     Route: 048
     Dates: start: 20151027
  4. OMEGA-3 MARINE TRIGLYCERIDES [Concomitant]
     Active Substance: FISH OIL
     Dosage: UNK

REACTIONS (1)
  - Oesophageal squamous cell carcinoma metastatic [Unknown]

NARRATIVE: CASE EVENT DATE: 20160205
